FAERS Safety Report 4614158-2 (Version None)
Quarter: 2005Q1

REPORT INFORMATION
  Report Type: 
  Country: None (occurrence: None)
  Receive Date: 20050316
  Receipt Date: 20050303
  Transmission Date: 20050727
  Serious: Yes (Hospitalization)
  Sender: FDA-Public Use
  Company Number: BR-2005-002648

PATIENT
  Age: 27 Year
  Sex: Female

DRUGS (4)
  1. BETAFERON (INTERFERON BETA - 1B) INJECTION, 250 UG [Suspect]
     Indication: MULTIPLE SCLEROSIS
     Dosage: 8 MIU,  EVERY 2D, SUBCUTANEOUS
     Route: 058
     Dates: start: 20040531
  2. MANTIDAN (AMANTADINE HYDROCHLORIDE) [Concomitant]
  3. AMITRIPTYLINE HCL [Concomitant]
  4. PAMELOR [Concomitant]

REACTIONS (8)
  - BACK PAIN [None]
  - GENERALISED ERYTHEMA [None]
  - HYPERSENSITIVITY [None]
  - INJECTION SITE HAEMORRHAGE [None]
  - INJECTION SITE PAIN [None]
  - PRURITUS GENERALISED [None]
  - TOOTH DISORDER [None]
  - URINARY TRACT INFECTION [None]
